FAERS Safety Report 8080456-6 (Version None)
Quarter: 2012Q1

REPORT INFORMATION
  Report Type: 
  Country: None (occurrence: None)
  Receive Date: 20120130
  Receipt Date: 20120118
  Transmission Date: 20120608
  Serious: Yes (Hospitalization)
  Sender: FDA-Public Use
  Company Number: JP-CELGENEUS-087-50794-12012229

PATIENT
  Sex: Male
  Weight: 90 kg

DRUGS (41)
  1. VIDAZA [Suspect]
     Dosage: 75 MILLIGRAM/SQ. METER
     Route: 041
     Dates: start: 20110627, end: 20110703
  2. AMIODARONE HYDROCHLORIDE [Concomitant]
     Route: 065
  3. MAGNESIUM SULFATE [Concomitant]
     Route: 065
  4. POLARAMINE [Concomitant]
     Route: 065
  5. EMEND [Concomitant]
     Route: 065
     Dates: start: 20111026, end: 20111028
  6. LANSOPRAZOLE [Concomitant]
     Route: 065
  7. CARVEDILOL [Concomitant]
     Route: 065
     Dates: end: 20111114
  8. SOLU-CORTEF [Concomitant]
     Route: 065
  9. MEROPENEM [Concomitant]
     Route: 065
     Dates: start: 20110601, end: 20110606
  10. EXJADE [Concomitant]
     Route: 065
     Dates: end: 20110927
  11. HEPARIN SODIUM [Concomitant]
     Route: 065
     Dates: start: 20111114, end: 20111202
  12. CARVEDILOL [Concomitant]
     Route: 065
     Dates: start: 20111125
  13. EPLERENONE [Concomitant]
     Route: 065
  14. LEVOFLOXACIN [Concomitant]
     Route: 065
     Dates: end: 20110614
  15. VIDAZA [Suspect]
     Dosage: 75 MILLIGRAM/SQ. METER
     Route: 041
     Dates: start: 20110725, end: 20110729
  16. ALLOPURINOL [Concomitant]
     Route: 065
     Dates: end: 20111122
  17. PIMOBENDAN [Concomitant]
     Route: 065
  18. VALTREX [Concomitant]
     Route: 065
     Dates: start: 20110529, end: 20110607
  19. TOLVAPTAN [Concomitant]
     Route: 065
  20. VIDAZA [Suspect]
     Dosage: 75 MILLIGRAM/SQ. METER
     Route: 041
     Dates: start: 20110926, end: 20110930
  21. LASIX [Concomitant]
     Route: 065
  22. MORPHINE HYDROCHLORIDE HYDRATE [Concomitant]
     Route: 065
     Dates: start: 20111114, end: 20111114
  23. VIDAZA [Suspect]
     Indication: MYELODYSPLASTIC SYNDROME
     Dosage: 75 MILLIGRAM/SQ. METER
     Route: 041
     Dates: start: 20110517, end: 20110523
  24. VIDAZA [Suspect]
     Dosage: 75 MILLIGRAM/SQ. METER
     Route: 041
     Dates: start: 20110822, end: 20110826
  25. LASIX [Concomitant]
     Route: 065
     Dates: start: 20111114, end: 20111114
  26. DEPAS [Concomitant]
     Route: 065
  27. LEVOFLOXACIN [Concomitant]
     Route: 065
     Dates: start: 20111119, end: 20111127
  28. ACETAMINOPHEN [Concomitant]
     Route: 065
  29. VIDAZA [Suspect]
     Dosage: 75 MILLIGRAM/SQ. METER
     Route: 041
     Dates: start: 20111024, end: 20111028
  30. ENALAPRIL MALEATE [Concomitant]
     Route: 065
     Dates: end: 20111122
  31. WARFARIN SODIUM [Concomitant]
     Route: 065
  32. ARMODAFINIL [Concomitant]
     Route: 065
     Dates: start: 20110529, end: 20110614
  33. DOPAMINE HCL [Concomitant]
     Route: 065
     Dates: start: 20111114, end: 20111116
  34. HUMULIN R [Concomitant]
     Route: 065
     Dates: start: 20111114, end: 20111202
  35. GRAN [Concomitant]
     Route: 065
     Dates: start: 20110525, end: 20110613
  36. RAMELTEON [Concomitant]
     Route: 065
     Dates: start: 20110517, end: 20110726
  37. HALOPERIDOL [Concomitant]
     Route: 065
     Dates: start: 20111114, end: 20111116
  38. FAMOTIDINE [Concomitant]
     Route: 065
     Dates: start: 20111115, end: 20111118
  39. DOBUPUM [Concomitant]
     Route: 065
     Dates: start: 20111114, end: 20111127
  40. ALOXI [Concomitant]
     Route: 065
     Dates: start: 20111024, end: 20111024
  41. PRIMPERAN TAB [Concomitant]
     Route: 065
     Dates: start: 20111114, end: 20111114

REACTIONS (2)
  - CARDIAC FAILURE ACUTE [None]
  - VENTRICULAR TACHYCARDIA [None]
